FAERS Safety Report 7793389-7 (Version None)
Quarter: 2011Q3

REPORT INFORMATION
  Report Type: 
  Country: None (occurrence: None)
  Receive Date: 20110930
  Receipt Date: 20110930
  Transmission Date: 20111222
  Serious: No
  Sender: FDA-Public Use
  Company Number: None

PATIENT
  Age: 57 Year
  Sex: Female
  Weight: 61.2356 kg

DRUGS (1)
  1. SAPHRIS [Suspect]
     Indication: ANXIETY
     Dosage: ONE TABLET SEE B.5. ORAL
     Route: 048
     Dates: start: 20110908, end: 20110910

REACTIONS (3)
  - MANIA [None]
  - HYPERSOMNIA [None]
  - SOMNOLENCE [None]
